FAERS Safety Report 4984554-2 (Version None)
Quarter: 2006Q2

REPORT INFORMATION
  Report Type: 
  Country: None (occurrence: None)
  Receive Date: 20060427
  Receipt Date: 20051024
  Transmission Date: 20061013
  Serious: No
  Sender: FDA-Public Use
  Company Number: US-GLAXOSMITHKLINE-A0579390A

PATIENT
  Age: 44 Year
  Sex: Female

DRUGS (5)
  1. DEXEDRINE [Suspect]
     Indication: NARCOLEPSY
     Dosage: 15MG FIVE TIMES PER DAY
     Route: 048
     Dates: start: 19880101
  2. SYNTHROID [Concomitant]
  3. BUMEX [Concomitant]
  4. UNKNOWN MEDICATION [Concomitant]
  5. M.V.I. [Concomitant]

REACTIONS (3)
  - ADVERSE EVENT [None]
  - HYPERSOMNIA [None]
  - MEDICATION ERROR [None]
